FAERS Safety Report 22184959 (Version 1)
Quarter: 2023Q2

REPORT INFORMATION
  Report Type: Spontaneous
  Country: US (occurrence: US)
  Receive Date: 20230407
  Receipt Date: 20230407
  Transmission Date: 20230721
  Serious: Yes (Other)
  Sender: FDA-Public Use
  Company Number: US-JNJFOC-20230404587

PATIENT
  Sex: Male

DRUGS (1)
  1. PEPCID COMPLETE [Suspect]
     Active Substance: CALCIUM CARBONATE\FAMOTIDINE\MAGNESIUM HYDROXIDE
     Indication: Product used for unknown indication
     Route: 065

REACTIONS (2)
  - Neoplasm malignant [Unknown]
  - Haemolytic anaemia [Unknown]
